FAERS Safety Report 9486501 (Version 1)
Quarter: 2013Q3

REPORT INFORMATION
  Report Type: Spontaneous
  Country: US (occurrence: None)
  Receive Date: 20130827
  Receipt Date: 20130827
  Transmission Date: 20140515
  Serious: Yes (Other)
  Sender: FDA-Public Use
  Company Number: None

PATIENT
  Age: 47 Year
  Sex: Female
  Weight: 90.27 kg

DRUGS (1)
  1. VIMOVO 500MG ASTRA ZENECA [Suspect]
     Indication: ARTHRITIS
     Route: 048
     Dates: start: 20130121, end: 20130712

REACTIONS (2)
  - Urticaria [None]
  - Angioedema [None]
